FAERS Safety Report 5890167-0 (Version None)
Quarter: 2008Q3

REPORT INFORMATION
  Report Type: 
  Country: None (occurrence: None)
  Receive Date: 20080919
  Receipt Date: 20080909
  Transmission Date: 20090109
  Serious: Yes (Hospitalization)
  Sender: FDA-Public Use
  Company Number: JP-PFIZER INC-2008073600

PATIENT

DRUGS (2)
  1. CELECOX [Suspect]
     Indication: HIP ARTHROPLASTY
     Route: 048
     Dates: start: 20080715, end: 20080726
  2. CYTOTEC [Concomitant]
     Dosage: TEXT:1 DF
     Route: 048
     Dates: start: 20080715, end: 20080726

REACTIONS (4)
  - GENERALISED ERYTHEMA [None]
  - GENERALISED OEDEMA [None]
  - PRURITUS GENERALISED [None]
  - RASH GENERALISED [None]
